FAERS Safety Report 9300389 (Version 1)
Quarter: 2013Q1

REPORT INFORMATION
  Report Type: Spontaneous
  Country: US (occurrence: None)
  Receive Date: 20130104
  Receipt Date: 20130104
  Transmission Date: 20140127
  Serious: Yes (Hospitalization)
  Sender: FDA-Public Use
  Company Number: FK201202822

PATIENT
  Age: 87 Year
  Sex: Female

DRUGS (7)
  1. PROPOFOL 1% (MANUFACTURER UNKNOWN) (PROPOFOL) (PROPOFOL) [Suspect]
     Indication: ANAESTHESIA
     Route: 042
  2. LIDOCAINE (MANUFACTURER UNKNOWN) (LIDOCAINE) (LIDOCAINE) [Suspect]
     Indication: ANAESTHESIA
     Route: 042
  3. DEXAMETHASONE INJECTION (MANUFACTURER UNKNOWN) (DEXAMETHASONE SODIUM PHOSPHATE) (DEXAMETHASONE SODIUM PHOSPHATE) [Suspect]
     Indication: PRODUCT USED FOR UNKNOWN INDICATION
  4. ROCURONIUM (ROCURONIUM) [Suspect]
     Indication: ANAESTHESIA
  5. NEOSTIGMINE (NEOSTIGMINE) [Suspect]
     Indication: ANAESTHESIA
  6. FENTANYL (FENTANYL) [Suspect]
     Indication: ANAESTHESIA
  7. HYDROMORPHINE (HYDROMORPHONE) [Suspect]
     Indication: ANAESTHESIA

REACTIONS (1)
  - Confusion postoperative [None]
